FAERS Safety Report 18312344 (Version 4)
Quarter: 2022Q1

REPORT INFORMATION
  Report Type: Spontaneous
  Country: US (occurrence: US)
  Receive Date: 20200925
  Receipt Date: 20220210
  Transmission Date: 20220423
  Serious: Yes (Other)
  Sender: FDA-Public Use
  Company Number: US-JNJFOC-20200928039

PATIENT
  Age: 7 Decade
  Sex: Female

DRUGS (7)
  1. ELMIRON [Suspect]
     Active Substance: PENTOSAN POLYSULFATE SODIUM
     Indication: Cystitis interstitial
     Route: 048
     Dates: start: 2009, end: 2010
  2. ELMIRON [Suspect]
     Active Substance: PENTOSAN POLYSULFATE SODIUM
     Route: 048
  3. LEVOTHYROXINE [Concomitant]
     Active Substance: LEVOTHYROXINE
     Indication: Hypothyroidism
     Route: 065
     Dates: start: 1975
  4. ZOLPIDEM [Concomitant]
     Active Substance: ZOLPIDEM TARTRATE
     Indication: Sleep disorder therapy
     Route: 065
     Dates: start: 2000, end: 2010
  5. HYDROCODONE [Concomitant]
     Active Substance: HYDROCODONE
     Indication: Pain
     Route: 065
     Dates: start: 2010
  6. METOPROLOL [Concomitant]
     Active Substance: METOPROLOL
     Indication: Heart rate
     Route: 065
     Dates: start: 2018
  7. TRAZODONE [Concomitant]
     Active Substance: TRAZODONE HYDROCHLORIDE
     Indication: Sleep disorder therapy
     Route: 065
     Dates: start: 2011

REACTIONS (3)
  - Dry age-related macular degeneration [Unknown]
  - Vitreous detachment [Unknown]
  - Retinal drusen [Unknown]

NARRATIVE: CASE EVENT DATE: 20130101
